FAERS Safety Report 21269333 (Version 3)
Quarter: 2022Q4

REPORT INFORMATION
  Report Type: Report from Study
  Country: US (occurrence: US)
  Receive Date: 20220830
  Receipt Date: 20221010
  Transmission Date: 20230113
  Serious: Yes (Other)
  Sender: FDA-Public Use
  Company Number: US-NOVARTISPH-NVSC2022US194028

PATIENT
  Sex: Female

DRUGS (1)
  1. GLEEVEC [Suspect]
     Active Substance: IMATINIB MESYLATE
     Indication: Product used for unknown indication
     Dosage: UNK
     Route: 065

REACTIONS (7)
  - Renal disorder [Unknown]
  - Neoplasm malignant [Unknown]
  - COVID-19 [Unknown]
  - General physical health deterioration [Unknown]
  - Illness [Unknown]
  - Sinusitis [Unknown]
  - Nasopharyngitis [Unknown]
